FAERS Safety Report 12481665 (Version 1)
Quarter: 2016Q2

REPORT INFORMATION
  Report Type: Spontaneous
  Country: GB (occurrence: GB)
  Receive Date: 20160620
  Receipt Date: 20160620
  Transmission Date: 20160815
  Serious: Yes (Other)
  Sender: FDA-Public Use
  Company Number: PHHY2016GB081202

PATIENT
  Sex: Male

DRUGS (1)
  1. AMLODIPINE [Suspect]
     Active Substance: AMLODIPINE BESYLATE
     Indication: PRODUCT USED FOR UNKNOWN INDICATION
     Dosage: 10 MG, UNK
     Route: 065
     Dates: start: 201602

REACTIONS (7)
  - Weight increased [Unknown]
  - Joint swelling [Unknown]
  - Pruritus [Unknown]
  - Product substitution issue [Unknown]
  - Cerebral haemorrhage [Unknown]
  - Wheezing [Unknown]
  - Vision blurred [Unknown]

NARRATIVE: CASE EVENT DATE: 201602
